FAERS Safety Report 22121416 (Version 1)
Quarter: 2023Q1

REPORT INFORMATION
  Report Type: Spontaneous
  Country: US (occurrence: US)
  Receive Date: 20230321
  Receipt Date: 20230321
  Transmission Date: 20230417
  Serious: Yes (Hospitalization)
  Sender: FDA-Public Use
  Company Number: US-MYLANLABS-2023M1030483

PATIENT
  Age: 62 Year
  Sex: Female

DRUGS (2)
  1. FLUOROURACIL [Suspect]
     Active Substance: FLUOROURACIL
     Indication: Adenocarcinoma of appendix
     Dosage: 4008 MILLIGRAM, BIWEEKLY, DOSE: BOLUS INFUSION OVER 46 HOURS
     Route: 042
  2. FLUOROURACIL [Suspect]
     Active Substance: FLUOROURACIL
     Dosage: UNK, LATER RE-INITIATED BASED ON ONCOLOGIST ADVICE
     Route: 042

REACTIONS (2)
  - Arteriospasm coronary [Unknown]
  - Acute coronary syndrome [Unknown]
